FAERS Safety Report 13175527 (Version 3)
Quarter: 2017Q1

REPORT INFORMATION
  Report Type: Spontaneous
  Country: NL (occurrence: NL)
  Receive Date: 20170201
  Receipt Date: 20170308
  Transmission Date: 20170428
  Serious: Yes (Death)
  Sender: FDA-Public Use
  Company Number: NL-PFIZER INC-2017041808

PATIENT
  Age: 74 Year
  Sex: Male

DRUGS (13)
  1. METOCLOPRAMIDE. [Concomitant]
     Active Substance: METOCLOPRAMIDE
     Dosage: 10 MG, 1 TO 3 A DAY
     Route: 048
  2. FUROSEMIDE. [Concomitant]
     Active Substance: FUROSEMIDE
     Dosage: 40 MG, 2X/DAY
     Route: 048
  3. CLOBETASONE [Concomitant]
     Active Substance: CLOBETASONE
     Dosage: 0.5 MG/G, UNK
  4. CYANOCOBALAMINE [Concomitant]
     Active Substance: CYANOCOBALAMIN
     Dosage: 1000 UG, 1X/DAY
     Route: 048
  5. AMLODIPINE [Concomitant]
     Active Substance: AMLODIPINE BESYLATE
     Dosage: 10 MG, 1X/DAY
     Route: 048
  6. APIXABAN [Concomitant]
     Active Substance: APIXABAN
     Dosage: 2.5 MG, 2X/DAY
     Route: 048
  7. INSULINE ASPARTE [Concomitant]
     Dosage: 3 ML, 2X/DAY
  8. POVIDON [Concomitant]
     Dosage: 1 GTT (50 MG/ML), 6X/DAY
     Route: 047
  9. SOMAVERT [Suspect]
     Active Substance: PEGVISOMANT
     Indication: ACROMEGALY
     Dosage: 80 MG, CYCLIC (4X/WEEK)
     Route: 058
     Dates: start: 20101228
  10. CETIRIZINE [Concomitant]
     Active Substance: CETIRIZINE HYDROCHLORIDE
     Dosage: 10 MG, 1X/DAY
     Route: 048
  11. METFORMIN [Concomitant]
     Active Substance: METFORMIN HYDROCHLORIDE
     Dosage: 500 MG, 2X/DAY
     Route: 048
  12. CETOMACROGOL [Concomitant]
     Active Substance: COSMETICS
     Dosage: 1 DF, 2X/DAY
  13. HYDROXYZINE [Concomitant]
     Active Substance: HYDROXYZINE HYDROCHLORIDE
     Dosage: 10 MG, 1 OR 2 A DAY
     Route: 048

REACTIONS (2)
  - Cardiac asthma [Fatal]
  - Product use issue [Unknown]

NARRATIVE: CASE EVENT DATE: 20101228
